FAERS Safety Report 23480969 (Version 1)
Quarter: 2024Q1

REPORT INFORMATION
  Report Type: Spontaneous
  Country: DE (occurrence: DE)
  Receive Date: 20240205
  Receipt Date: 20240205
  Transmission Date: 20240410
  Serious: Yes (Death, Hospitalization, Other)
  Sender: FDA-Public Use
  Company Number: DE-EMADD-202401197482701125031

PATIENT
  Age: 65 Year
  Sex: Female

DRUGS (12)
  1. DAPTOMYCIN [Suspect]
     Active Substance: DAPTOMYCIN
     Indication: Enterococcal infection
     Dosage: UNK
  2. AMPHOTERICIN B [Suspect]
     Active Substance: AMPHOTERICIN B
     Indication: Anti-infective therapy
     Dosage: UNK
  3. ANIDULAFUNGIN [Suspect]
     Active Substance: ANIDULAFUNGIN
     Indication: Enterococcal infection
     Dosage: UNK
  4. MEROPENEM [Suspect]
     Active Substance: MEROPENEM
     Indication: Enterococcal infection
     Dosage: UNK
  5. HYDROCORTISONE [Suspect]
     Active Substance: HYDROCORTISONE
     Indication: Immunosuppressant drug therapy
     Dosage: UNK
  6. GANCICLOVIR SODIUM [Suspect]
     Active Substance: GANCICLOVIR SODIUM
     Indication: Enterococcal infection
     Dosage: UNK
  7. PREDNISOLONE [Suspect]
     Active Substance: PREDNISOLONE
     Indication: Prophylaxis against graft versus host disease
     Dosage: RECEIVED AFTER SECOND LIVER TRANSPLANT
  8. TACROLIMUS [Suspect]
     Active Substance: TACROLIMUS
     Indication: Liver transplant
     Dosage: RECEIVED AFTER SECOND LIVER TRANSPLANT
  9. VORICONAZOLE [Suspect]
     Active Substance: VORICONAZOLE
     Indication: Antifungal prophylaxis
     Dosage: UNK
  10. VALGANCICLOVIR HYDROCHLORIDE [Suspect]
     Active Substance: VALGANCICLOVIR HYDROCHLORIDE
     Indication: Antifungal prophylaxis
     Dosage: UNK
  11. BASILIXIMAB [Suspect]
     Active Substance: BASILIXIMAB
     Indication: Prophylaxis against graft versus host disease
     Dosage: RECEIVED AFTER SECOND LIVER TRANSPLANT
  12. BASILIXIMAB [Suspect]
     Active Substance: BASILIXIMAB
     Indication: Prophylaxis against graft versus host disease
     Dosage: 20 MG, POD 1 AND 4

REACTIONS (8)
  - Blood pressure fluctuation [Fatal]
  - Imprisonment [Fatal]
  - Intracranial infection [Fatal]
  - Fusarium infection [Fatal]
  - Brain abscess [Fatal]
  - Brain oedema [Fatal]
  - Enterococcal infection [Unknown]
  - Drug ineffective [Fatal]
